FAERS Safety Report 6736501-0 (Version None)
Quarter: 2010Q2

REPORT INFORMATION
  Report Type: 
  Country: None (occurrence: None)
  Receive Date: 20100519
  Receipt Date: 20100506
  Transmission Date: 20101027
  Serious: Yes (Hospitalization)
  Sender: FDA-Public Use
  Company Number: 2010US-33660

PATIENT
  Age: 80 Year
  Sex: Female

DRUGS (7)
  1. ENALAPRIL MALEATE [Suspect]
     Indication: HYPERTENSION
     Dosage: 10MG
  2. GUAIFENESIN +CODEINE [GUAIPHENESIN +CODEINE], UNKNOWN [Suspect]
     Indication: COUGH
     Dosage: 100/10/5ML, 5ML EVERY 4HRS, AS NEEDED
  3. LEVOFLOXACIN [Suspect]
     Indication: PNEUMONIA
     Dosage: 500MG
  4. ACETAMINOPHEN [Suspect]
     Indication: DRUG USE FOR UNKNOWN INDICATION
  5. ALENDRONIC ACID [ALENDRONIC ACID], UNKNOWN [Suspect]
     Indication: DRUG USE FOR UNKNOWN INDICATION
  6. CALCIUM [CALCIUM], UNKNOWN [Suspect]
     Indication: DRUG USE FOR UNKNOWN INDICATION
  7. HYDROCHLOROTHIAZIDE [Suspect]
     Indication: DRUG USE FOR UNKNOWN INDICATION

REACTIONS (4)
  - COUGH [None]
  - DEHYDRATION [None]
  - DELIRIUM [None]
  - PSEUDOMEMBRANOUS COLITIS [None]
